FAERS Safety Report 6713686-3 (Version None)
Quarter: 2010Q2

REPORT INFORMATION
  Report Type: 
  Country: None (occurrence: None)
  Receive Date: 20100506
  Receipt Date: 20100430
  Transmission Date: 20101027
  Serious: Yes (Hospitalization)
  Sender: FDA-Public Use
  Company Number: US-SANOFI-AVENTIS-2009SA011229

PATIENT
  Age: 68 Year
  Sex: Female
  Weight: 83.91 kg

DRUGS (5)
  1. APIDRA [Suspect]
     Dosage: 6 UNITS, 12 UNITS, 25 UNITS
     Route: 058
     Dates: start: 20060101
  2. OPTICLICK [Suspect]
  3. LANTUS [Suspect]
     Dosage: DOSE:15 UNIT(S)
     Route: 058
  4. SOLOSTAR [Suspect]
     Dates: start: 20070101
  5. NITROFURANTOIN [Concomitant]
     Indication: URINARY TRACT INFECTION
     Route: 065

REACTIONS (3)
  - AUTOIMMUNE HEPATITIS [None]
  - BLOOD GLUCOSE INCREASED [None]
  - YELLOW SKIN [None]
